FAERS Safety Report 10069049 (Version 1)
Quarter: 2014Q2

REPORT INFORMATION
  Report Type: Spontaneous
  Country: US (occurrence: US)
  Receive Date: 20140409
  Receipt Date: 20140409
  Transmission Date: 20141212
  Serious: No
  Sender: FDA-Public Use
  Company Number: US-BAYER-2014-050927

PATIENT
  Sex: 0

DRUGS (1)
  1. BETASERON [Suspect]

REACTIONS (3)
  - Injection site infection [None]
  - Injection site mass [None]
  - Injection site bruising [None]
